FAERS Safety Report 5463742-5 (Version None)
Quarter: 2007Q3

REPORT INFORMATION
  Report Type: 
  Country: None (occurrence: None)
  Receive Date: 20070920
  Receipt Date: 20070913
  Transmission Date: 20080115
  Serious: No
  Sender: FDA-Public Use
  Company Number: US-BOEHRINGER INGELHEIM PHARMACEUTICALS, INC.-2005-BP-20455BP

PATIENT
  Age: 73 Year
  Weight: 45.45 kg

DRUGS (5)
  1. SPIRIVA [Suspect]
     Indication: CHRONIC OBSTRUCTIVE PULMONARY DISEASE
     Route: 055
     Dates: start: 20050106, end: 20050909
  2. ADVAIR DISKUS 100/50 [Concomitant]
  3. DOXEPIN HCL [Concomitant]
     Dates: start: 20050801
  4. LIPITOR [Concomitant]
     Dates: start: 20040101
  5. SYNTHROID [Concomitant]

REACTIONS (2)
  - BUNDLE BRANCH BLOCK LEFT [None]
  - ELECTROCARDIOGRAM CHANGE [None]
